FAERS Safety Report 4966952-6 (Version None)
Quarter: 2006Q2

REPORT INFORMATION
  Report Type: 
  Country: None (occurrence: None)
  Receive Date: 20060403
  Receipt Date: 20060317
  Transmission Date: 20061013
  Serious: Yes (Hospitalization)
  Sender: FDA-Public Use
  Company Number: 223600

PATIENT
  Age: 67 Year
  Sex: Male

DRUGS (3)
  1. AVASTIN [Suspect]
     Indication: METASTATIC GASTRIC CANCER
     Dates: start: 20050103, end: 20051113
  2. IRINOTECAN HCL [Suspect]
     Indication: METASTATIC GASTRIC CANCER
     Dates: start: 20050103, end: 20051113
  3. CISPLATIN [Suspect]
     Indication: METASTATIC GASTRIC CANCER
     Dates: start: 20050103, end: 20051113

REACTIONS (10)
  - AMNESIA [None]
  - BLOOD SODIUM DECREASED [None]
  - BRAIN COMPRESSION [None]
  - BRAIN OEDEMA [None]
  - CEREBRAL INFARCTION [None]
  - DEPRESSION [None]
  - GRAND MAL CONVULSION [None]
  - MIGRAINE [None]
  - NUCLEAR MAGNETIC RESONANCE IMAGING BRAIN ABNORMAL [None]
  - REVERSIBLE POSTERIOR LEUKOENCEPHALOPATHY SYNDROME [None]
